FAERS Safety Report 11069114 (Version 1)
Quarter: 2015Q2

REPORT INFORMATION
  Report Type: Spontaneous
  Country: ES (occurrence: ES)
  Receive Date: 20150427
  Receipt Date: 20150427
  Transmission Date: 20150821
  Serious: Yes (Other)
  Sender: FDA-Public Use
  Company Number: PHHY2015ES045976

PATIENT
  Sex: Female

DRUGS (1)
  1. ZOLEDRONATE [Suspect]
     Active Substance: ZOLEDRONIC ACID
     Indication: BREAST CANCER
     Dosage: 4 MG, UNK
     Route: 042

REACTIONS (8)
  - Exposed bone in jaw [Recovered/Resolved]
  - Wound [Recovering/Resolving]
  - Oral mucosal erythema [Recovered/Resolved]
  - Mucosal infection [Recovered/Resolved]
  - Mouth ulceration [Recovered/Resolved]
  - Bone lesion [Recovered/Resolved]
  - Osteonecrosis of jaw [Recovered/Resolved]
  - Mucosal inflammation [Recovered/Resolved]
